FAERS Safety Report 7011876-6 (Version None)
Quarter: 2010Q3

REPORT INFORMATION
  Report Type: 
  Country: None (occurrence: None)
  Receive Date: 20100924
  Receipt Date: 20100916
  Transmission Date: 20110219
  Serious: Yes (Other)
  Sender: FDA-Public Use
  Company Number: US-ASTRAZENECA-2009UW00921

PATIENT
  Age: 19214 Day
  Sex: Female

DRUGS (12)
  1. SEROQUEL [Suspect]
     Indication: SCHIZOPHRENIA
     Route: 048
     Dates: start: 19990101, end: 20020101
  2. SEROQUEL [Suspect]
     Indication: DEPRESSION
     Route: 048
     Dates: start: 19990101, end: 20020101
  3. SEROQUEL [Suspect]
     Indication: MENTAL DISORDER
     Route: 048
     Dates: start: 19990101, end: 20020101
  4. SEROQUEL [Suspect]
     Dosage: 25-800 MG DAILY
     Route: 048
     Dates: start: 20000110
  5. SEROQUEL [Suspect]
     Dosage: 25-800 MG DAILY
     Route: 048
     Dates: start: 20000110
  6. SEROQUEL [Suspect]
     Dosage: 25-800 MG DAILY
     Route: 048
     Dates: start: 20000110
  7. HALDOL [Concomitant]
     Dosage: 35 MG (0.7 ML) Q 4 WKS
     Dates: start: 19990428
  8. COGENTIN [Concomitant]
     Route: 048
     Dates: start: 19990428
  9. THORAZINE [Concomitant]
  10. ABILIFY [Concomitant]
     Indication: MENTAL DISORDER
     Dosage: 10-30 MG
     Route: 048
     Dates: start: 20030211
  11. NEURONTIN [Concomitant]
     Indication: AFFECTIVE DISORDER
     Dosage: 100-2400 MG DAILY
     Route: 048
  12. ZESTRIL [Concomitant]
     Dates: start: 20000110

REACTIONS (3)
  - DIABETES MELLITUS [None]
  - DIABETIC NEUROPATHY [None]
  - TYPE 1 DIABETES MELLITUS [None]
